FAERS Safety Report 5562062-8 (Version None)
Quarter: 2007Q4

REPORT INFORMATION
  Report Type: 
  Country: None (occurrence: None)
  Receive Date: 20071215
  Receipt Date: 20071001
  Transmission Date: 20080405
  Serious: No
  Sender: FDA-Public Use
  Company Number: US-AMGEN-KDL244672

PATIENT
  Sex: Female
  Weight: 54 kg

DRUGS (3)
  1. ENBREL [Suspect]
     Indication: PSORIASIS
     Route: 058
     Dates: start: 20070807
  2. CYCLOSPORINE [Concomitant]
     Dates: start: 20070810
  3. DIPROLENE [Concomitant]
     Route: 061
     Dates: start: 20070807

REACTIONS (9)
  - INJECTION SITE BRUISING [None]
  - INJECTION SITE ERYTHEMA [None]
  - INJECTION SITE REACTION [None]
  - INJECTION SITE SWELLING [None]
  - INJECTION SITE URTICARIA [None]
  - INJECTION SITE WARMTH [None]
  - MYALGIA [None]
  - PSORIASIS [None]
  - STRESS [None]
